FAERS Safety Report 5122523-2 (Version None)
Quarter: 2006Q4

REPORT INFORMATION
  Report Type: 
  Country: None (occurrence: None)
  Receive Date: 20061009
  Receipt Date: 20060928
  Transmission Date: 20070319
  Serious: Yes (Other)
  Sender: FDA-Public Use
  Company Number: US-JNJFOC-20060500027

PATIENT
  Sex: Female
  Weight: 78.02 kg

DRUGS (6)
  1. REMICADE [Suspect]
     Indication: COLITIS ULCERATIVE
     Dosage: FIRST INFUSION
     Route: 042
  2. PLAQUENIL [Concomitant]
     Indication: RHEUMATOID ARTHRITIS
     Dosage: 4 YEARS
  3. FLORA-Q [Concomitant]
     Indication: GASTROINTESTINAL DISORDER
     Dosage: 2 YEARS
  4. PREDNISONE [Concomitant]
     Indication: COLITIS ULCERATIVE
  5. CORTENEMA [Concomitant]
     Indication: COLITIS ULCERATIVE
  6. PROBIOTICS [Concomitant]
     Indication: COLITIS ULCERATIVE

REACTIONS (5)
  - COLECTOMY [None]
  - HEADACHE [None]
  - HYPOAESTHESIA [None]
  - MUSCULAR WEAKNESS [None]
  - PARAESTHESIA [None]
